FAERS Safety Report 9820281 (Version 2)
Quarter: 2014Q1

REPORT INFORMATION
  Report Type: Spontaneous
  Country: FR (occurrence: FR)
  Receive Date: 20140116
  Receipt Date: 20140123
  Transmission Date: 20141002
  Serious: Yes (Hospitalization)
  Sender: FDA-Public Use
  Company Number: FR-009507513-1401FRA003074

PATIENT
  Age: 34 Year
  Sex: Female

DRUGS (3)
  1. ORGALUTRAN [Suspect]
     Indication: IN VITRO FERTILISATION
     Dosage: 1 DF, QD
     Route: 058
     Dates: start: 20130127, end: 20130201
  2. GONAL-F [Suspect]
     Indication: IN VITRO FERTILISATION
     Dosage: 200 IU, QD
     Route: 058
     Dates: start: 20130122, end: 20130201
  3. OVITRELLE [Suspect]
     Indication: IN VITRO FERTILISATION
     Dosage: 1 DF, ONCE
     Route: 058
     Dates: start: 20130202, end: 20130202

REACTIONS (3)
  - Respiratory disorder [Recovered/Resolved]
  - Ascites [Recovered/Resolved]
  - Ovarian hyperstimulation syndrome [Recovered/Resolved]
